FAERS Safety Report 18873685 (Version 1)
Quarter: 2021Q1

REPORT INFORMATION
  Report Type: Spontaneous
  Country: US (occurrence: US)
  Receive Date: 20210210
  Receipt Date: 20210210
  Transmission Date: 20210420
  Serious: No
  Sender: FDA-Public Use
  Company Number: US-PFIZER INC-2020045040

PATIENT
  Sex: Female

DRUGS (2)
  1. PROCARDIA [Suspect]
     Active Substance: NIFEDIPINE
     Indication: BACTERIAL TOXAEMIA
  2. PROCARDIA [Suspect]
     Active Substance: NIFEDIPINE
     Indication: BLOOD PRESSURE ABNORMAL
     Dosage: 5 MG, 1X/DAY
     Route: 048

REACTIONS (3)
  - Drug effective for unapproved indication [Unknown]
  - Joint swelling [Unknown]
  - Off label use [Unknown]
